FAERS Safety Report 7232331-4 (Version None)
Quarter: 2011Q1

REPORT INFORMATION
  Report Type: 
  Country: None (occurrence: None)
  Receive Date: 20110119
  Receipt Date: 20110105
  Transmission Date: 20110831
  Serious: Yes (Hospitalization)
  Sender: FDA-Public Use
  Company Number: US-RANBAXY-2011US-40956

PATIENT

DRUGS (2)
  1. CETIRIZINE HCL [Suspect]
     Indication: RHINORRHOEA
     Dosage: 10 MG, QD
     Route: 048
     Dates: end: 20101201
  2. CETIRIZINE HCL [Suspect]
     Indication: NASAL CONGESTION

REACTIONS (2)
  - DYSPNOEA [None]
  - ASPHYXIA [None]
